FAERS Safety Report 20269446 (Version 1)
Quarter: 2022Q1

REPORT INFORMATION
  Report Type: Spontaneous
  Country: CA (occurrence: CA)
  Receive Date: 20220101
  Receipt Date: 20220101
  Transmission Date: 20220423
  Serious: Yes (Life-Threatening, Hospitalization, Other)
  Sender: FDA-Public Use
  Company Number: CA-SA-SAC20211229000019

PATIENT
  Age: 62 Year
  Sex: Female

DRUGS (11)
  1. RANITIDINE HYDROCHLORIDE [Suspect]
     Active Substance: RANITIDINE HYDROCHLORIDE
  2. BUDESONIDE\FORMOTEROL FUMARATE [Suspect]
     Active Substance: BUDESONIDE\FORMOTEROL FUMARATE
  3. CALCIUM [Suspect]
     Active Substance: CALCIUM
  4. FISH OIL [Suspect]
     Active Substance: FISH OIL
  5. GLYCOPYRRONIUM [Suspect]
     Active Substance: GLYCOPYRRONIUM
  6. LIOTHYRONINE SODIUM [Suspect]
     Active Substance: LIOTHYRONINE SODIUM
  7. MEPOLIZUMAB [Suspect]
     Active Substance: MEPOLIZUMAB
     Indication: Asthma
  8. PREDNISONE [Suspect]
     Active Substance: PREDNISONE
     Indication: Asthma
  9. PULMICORT TURBUHALER [Suspect]
     Active Substance: BUDESONIDE
  10. ALBUTEROL [Suspect]
     Active Substance: ALBUTEROL
  11. VITAMIN D NOS [Suspect]
     Active Substance: VITAMIN D NOS

REACTIONS (11)
  - Abdominal distension [Not Recovered/Not Resolved]
  - Asthma [Not Recovered/Not Resolved]
  - Cough [Not Recovered/Not Resolved]
  - Dyspnoea [Not Recovered/Not Resolved]
  - Hypertension [Not Recovered/Not Resolved]
  - Peak expiratory flow rate decreased [Not Recovered/Not Resolved]
  - Pneumonia [Not Recovered/Not Resolved]
  - Respiratory symptom [Not Recovered/Not Resolved]
  - Therapeutic product effect incomplete [Unknown]
  - Inappropriate schedule of product administration [Unknown]
  - Extra dose administered [Not Recovered/Not Resolved]
